FAERS Safety Report 10258118 (Version 1)
Quarter: 2014Q2

REPORT INFORMATION
  Report Type: Spontaneous
  Country: JP (occurrence: JP)
  Receive Date: 20140625
  Receipt Date: 20140625
  Transmission Date: 20141212
  Serious: Yes (Other)
  Sender: FDA-Public Use
  Company Number: PHHY2014JP074099

PATIENT
  Sex: Male

DRUGS (1)
  1. AMPICILLIN+SULBACTAM SANDOZ [Suspect]
     Route: 042
     Dates: start: 20140610

REACTIONS (1)
  - Gamma-glutamyltransferase increased [Unknown]
